FAERS Safety Report 12803350 (Version 1)
Quarter: 2016Q4

REPORT INFORMATION
  Report Type: Spontaneous
  Country: CH (occurrence: CH)
  Receive Date: 20161003
  Receipt Date: 20161003
  Transmission Date: 20170207
  Serious: Yes (Life-Threatening)
  Sender: FDA-Public Use
  Company Number: CH-009507513-1609CHE013197

PATIENT
  Age: 64 Year
  Sex: Female

DRUGS (5)
  1. BECOZYME [Concomitant]
     Active Substance: VITAMINS
     Dosage: 1 DF, QD
     Route: 048
     Dates: end: 201609
  2. EZETROL [Suspect]
     Active Substance: EZETIMIBE
     Indication: HYPERCHOLESTEROLAEMIA
     Dosage: 10 MG, QD
     Route: 048
     Dates: end: 201609
  3. VITAMIN D3 STREULI [Concomitant]
     Dosage: 0.5 DF, ? AMPULE EVERY 12 WEEKS
     Route: 048
     Dates: end: 201609
  4. COSENTYX [Suspect]
     Active Substance: SECUKINUMAB
     Indication: PSORIATIC ARTHROPATHY
     Dosage: 150 MG, BIM
     Route: 040
     Dates: start: 201512, end: 201609
  5. EFEXOR [Suspect]
     Active Substance: VENLAFAXINE HYDROCHLORIDE
     Dosage: 75 MG, QD
     Route: 048

REACTIONS (1)
  - Ischaemic stroke [Recovering/Resolving]

NARRATIVE: CASE EVENT DATE: 201609
